FAERS Safety Report 4839477-6 (Version None)
Quarter: 2005Q4

REPORT INFORMATION
  Report Type: 
  Country: None (occurrence: None)
  Receive Date: 20051128
  Receipt Date: 20051128
  Transmission Date: 20060501
  Serious: Yes (Hospitalization)
  Sender: FDA-Public Use
  Company Number: None

PATIENT
  Sex: Female
  Weight: 71.7 kg

DRUGS (7)
  1. PEG INTERFERON [Suspect]
     Indication: HEPATITIS C
     Dosage: 180 MCG Q WK PO / 200 MG BID  ~ 1 MONTH AGO
     Route: 048
  2. PREDNISONE [Concomitant]
  3. PROGRAF [Concomitant]
  4. BACTRIM [Concomitant]
  5. RANITIDINE [Concomitant]
  6. OXAZEPAM [Concomitant]
  7. RITALIN [Concomitant]

REACTIONS (6)
  - CHEST PAIN [None]
  - DEHYDRATION [None]
  - DIARRHOEA [None]
  - DIZZINESS [None]
  - NAUSEA [None]
  - VOMITING [None]
